FAERS Safety Report 7743412-0 (Version None)
Quarter: 2011Q3

REPORT INFORMATION
  Report Type: 
  Country: None (occurrence: None)
  Receive Date: 20110819
  Receipt Date: 20110526
  Transmission Date: 20111222
  Serious: No
  Sender: FDA-Public Use
  Company Number: 034288

PATIENT
  Age: 37 Year
  Sex: Male

DRUGS (2)
  1. LACOSAMIDE [Suspect]
     Dosage: 100 MG BID
     Dates: end: 20110510
  2. KEPPRA [Suspect]
     Dosage: 750 MG, AT HS (HOUR OF SLEEP)

REACTIONS (3)
  - ABNORMAL BEHAVIOUR [None]
  - AGITATION [None]
  - AGGRESSION [None]
